FAERS Safety Report 26150765 (Version 1)
Quarter: 2025Q4

REPORT INFORMATION
  Report Type: Spontaneous
  Country: US (occurrence: US)
  Receive Date: 20251212
  Receipt Date: 20251212
  Transmission Date: 20260118
  Serious: No
  Sender: ALCON
  Company Number: US-ALCON LABORATORIES-ALC2025US006251

PATIENT
  Sex: Female

DRUGS (3)
  1. ACOLTREMON [Suspect]
     Active Substance: ACOLTREMON
     Indication: Product used for unknown indication
     Dosage: 1 DROP INTO BOTH EYES 2 TIMES A DAY
     Route: 047
     Dates: start: 20251024
  2. PREMARIN [Concomitant]
     Active Substance: ESTROGENS, CONJUGATED
     Indication: Product used for unknown indication
     Route: 065
  3. SYNTHROID [Concomitant]
     Active Substance: LEVOTHYROXINE SODIUM
     Indication: Product used for unknown indication
     Route: 065

REACTIONS (4)
  - Ocular hyperaemia [Unknown]
  - Eye swelling [Unknown]
  - Eyelid margin crusting [Unknown]
  - Eye irritation [Unknown]
